FAERS Safety Report 6381908-7 (Version None)
Quarter: 2009Q3

REPORT INFORMATION
  Report Type: 
  Country: None (occurrence: None)
  Receive Date: 20090930
  Receipt Date: 20090825
  Transmission Date: 20100115
  Serious: No
  Sender: FDA-Public Use
  Company Number: US-BAYER-200913775BCC

PATIENT
  Age: 79 Year
  Sex: Female
  Weight: 57 kg

DRUGS (5)
  1. ALEVE (CAPLET) [Suspect]
     Indication: ARTHRALGIA
     Dosage: TOTAL DAILY DOSE: 880 MG  UNIT DOSE: 220 MG
     Route: 048
     Dates: start: 20090801
  2. CENTRUM SENIOR [Concomitant]
     Route: 065
  3. NATURE MADE CALCIUM [Concomitant]
     Route: 065
  4. FLAX SEED OIL [Concomitant]
     Route: 065
  5. SUPER L-LYSINE [Concomitant]
     Route: 065

REACTIONS (2)
  - ARTHRALGIA [None]
  - NEURALGIA [None]
